FAERS Safety Report 5331010-8 (Version None)
Quarter: 2007Q2

REPORT INFORMATION
  Report Type: 
  Country: None (occurrence: None)
  Receive Date: 20070522
  Receipt Date: 20070515
  Transmission Date: 20071010
  Serious: Yes (Hospitalization)
  Sender: FDA-Public Use
  Company Number: FR-JNJFOC-20070504125

PATIENT
  Age: 80 Year
  Sex: Female
  Weight: 83 kg

DRUGS (6)
  1. HALDOL [Suspect]
     Indication: DEPRESSION
     Route: 048
  2. ANAFRANIL [Interacting]
     Indication: DEPRESSION
     Route: 048
  3. MYOLASTAN [Interacting]
     Indication: DRUG USE FOR UNKNOWN INDICATION
     Route: 048
  4. TRANXENE [Interacting]
     Indication: DYSTHYMIC DISORDER
  5. COAPROVEL [Interacting]
     Indication: HYPERTENSION
     Route: 048
  6. ACETAMINOPHEN AND TRAMADOL HCL [Concomitant]
     Route: 048

REACTIONS (4)
  - DRUG INTERACTION [None]
  - FALL [None]
  - HYPOTHERMIA [None]
  - ORTHOSTATIC HYPOTENSION [None]
